FAERS Safety Report 8336875-3 (Version None)
Quarter: 2012Q2

REPORT INFORMATION
  Report Type: 
  Country: None (occurrence: None)
  Receive Date: 20120504
  Receipt Date: 20110509
  Transmission Date: 20120825
  Serious: No
  Sender: FDA-Public Use
  Company Number: US-TEVA-2011002298

PATIENT
  Sex: Male
  Weight: 65.83 kg

DRUGS (7)
  1. PREDNISONE [Concomitant]
     Dates: start: 20110101
  2. PRILOSEC [Concomitant]
     Dates: start: 20110505
  3. HUMAN GROWTH HORMONE [Concomitant]
  4. TESTOSTERONE [Concomitant]
  5. SYNTHROID [Concomitant]
  6. NUVIGIL [Suspect]
     Indication: SLEEP APNOEA SYNDROME
     Dosage: 150 MILLIGRAM;
     Route: 048
     Dates: start: 20110507
  7. HYDROCORTISONE [Concomitant]

REACTIONS (4)
  - DIZZINESS [None]
  - NAUSEA [None]
  - CONFUSIONAL STATE [None]
  - HYPERHIDROSIS [None]
